FAERS Safety Report 13059036 (Version 2)
Quarter: 2016Q4

REPORT INFORMATION
  Report Type: Spontaneous
  Country: US (occurrence: US)
  Receive Date: 20161223
  Receipt Date: 20161229
  Transmission Date: 20170207
  Serious: No
  Sender: FDA-Public Use
  Company Number: US-HORIZON-PEN-0589-2016

PATIENT
  Age: 46 Year
  Sex: Female

DRUGS (1)
  1. PENNSAID [Suspect]
     Active Substance: DICLOFENAC SODIUM
     Indication: EPICONDYLITIS
     Dosage: 2 DF BID
     Route: 061
     Dates: start: 20161210, end: 20161213

REACTIONS (7)
  - Off label use [Unknown]
  - Rash pruritic [Recovering/Resolving]
  - Product use issue [Unknown]
  - Dry skin [Recovering/Resolving]
  - Application site warmth [Recovering/Resolving]
  - Exfoliative rash [Recovering/Resolving]
  - Intentional product use issue [Unknown]

NARRATIVE: CASE EVENT DATE: 20161210
